FAERS Safety Report 15172149 (Version 1)
Quarter: 2018Q3

REPORT INFORMATION
  Report Type: Spontaneous
  Country: US (occurrence: US)
  Receive Date: 20180622
  Receipt Date: 20180622
  Transmission Date: 20181010
  Serious: No
  Sender: FDA-Public Use
  Company Number: None

PATIENT
  Sex: Female
  Weight: 77.11 kg

DRUGS (8)
  1. FLUTICASONE PROPIONATE NASAL SPRAY USP, 50MCG PER SPRAY NONE [Suspect]
     Active Substance: FLUTICASONE PROPIONATE
     Indication: SINUS DISORDER
     Dates: start: 20180330, end: 20180622
  2. SYNTHROID [Concomitant]
     Active Substance: LEVOTHYROXINE SODIUM
  3. BABY ASPIRIN [Concomitant]
     Active Substance: ASPIRIN
  4. TYLENOL PROBIOTIC [Concomitant]
  5. B12 SHOTS [Concomitant]
     Active Substance: CYANOCOBALAMIN
  6. FUROSEMIDE. [Concomitant]
     Active Substance: FUROSEMIDE
  7. ESTRADIOL. [Concomitant]
     Active Substance: ESTRADIOL
  8. LISINIPRIL [Concomitant]
     Active Substance: LISINOPRIL

REACTIONS (1)
  - Recalled product [None]
